FAERS Safety Report 15144675 (Version 1)
Quarter: 2018Q3

REPORT INFORMATION
  Report Type: Spontaneous
  Country: US (occurrence: US)
  Receive Date: 20180713
  Receipt Date: 20180713
  Transmission Date: 20181010
  Serious: No
  Sender: FDA-Public Use
  Company Number: US-PFIZER INC-2018279851

PATIENT
  Age: 73 Year
  Sex: Female
  Weight: 75.75 kg

DRUGS (3)
  1. XELJANZ XR [Suspect]
     Active Substance: TOFACITINIB CITRATE
     Indication: PSORIATIC ARTHROPATHY
  2. SYNTHROID [Concomitant]
     Active Substance: LEVOTHYROXINE SODIUM
     Dosage: UNK
  3. XELJANZ XR [Suspect]
     Active Substance: TOFACITINIB CITRATE
     Indication: OSTEOARTHRITIS
     Dosage: 11 MG, 1X/DAY
     Route: 048
     Dates: start: 20180607

REACTIONS (4)
  - Joint injury [Unknown]
  - Upper limb fracture [Unknown]
  - Fall [Unknown]
  - Arthralgia [Unknown]

NARRATIVE: CASE EVENT DATE: 20180614
